FAERS Safety Report 8334238-8 (Version None)
Quarter: 2012Q2

REPORT INFORMATION
  Report Type: 
  Country: None (occurrence: None)
  Receive Date: 20120503
  Receipt Date: 20120427
  Transmission Date: 20120825
  Serious: Yes (Death)
  Sender: FDA-Public Use
  Company Number: GB-GLAXOSMITHKLINE-B0798559A

PATIENT
  Age: 80 Year
  Sex: Male

DRUGS (7)
  1. CLOPIDOGREL [Concomitant]
  2. ACETAMINOPHEN [Concomitant]
  3. CHLORPHENIRAMINE MALEATE [Concomitant]
  4. ISMN [Concomitant]
  5. VOTRIENT [Suspect]
     Indication: METASTATIC RENAL CELL CARCINOMA
     Route: 048
     Dates: start: 20120322, end: 20120410
  6. CO-DANTHRAMER [Concomitant]
  7. ALLOPURINOL [Concomitant]

REACTIONS (2)
  - POSTERIOR REVERSIBLE ENCEPHALOPATHY SYNDROME [None]
  - CONFUSIONAL STATE [None]
